FAERS Safety Report 20685641 (Version 1)
Quarter: 2022Q2

REPORT INFORMATION
  Report Type: Spontaneous
  Country: US (occurrence: US)
  Receive Date: 20220407
  Receipt Date: 20220407
  Transmission Date: 20220721
  Serious: No
  Sender: FDA-Public Use
  Company Number: US-ORGANON-O2204USA000467

PATIENT
  Sex: Female
  Weight: 64.399 kg

DRUGS (2)
  1. NEXPLANON [Suspect]
     Active Substance: ETONOGESTREL
     Indication: Contraception
     Dosage: 1 IMPLANT IN LEFT ARM (3 YEARS)
     Route: 059
     Dates: start: 20191105
  2. NEXPLANON [Suspect]
     Active Substance: ETONOGESTREL
     Indication: Headache

REACTIONS (3)
  - Amenorrhoea [Recovered/Resolved]
  - Heavy menstrual bleeding [Not Recovered/Not Resolved]
  - Product use in unapproved indication [Unknown]

NARRATIVE: CASE EVENT DATE: 20190101
